FAERS Safety Report 10222229 (Version 1)
Quarter: 2014Q2

REPORT INFORMATION
  Report Type: Spontaneous
  Country: US (occurrence: US)
  Receive Date: 20140606
  Receipt Date: 20140606
  Transmission Date: 20141212
  Serious: Yes (Hospitalization)
  Sender: FDA-Public Use
  Company Number: US-GLAXOSMITHKLINE-A1075284A

PATIENT
  Age: 71 Year
  Sex: Female

DRUGS (11)
  1. ADVAIR HFA [Suspect]
     Indication: CHRONIC OBSTRUCTIVE PULMONARY DISEASE
     Dosage: 2PUFF TWICE PER DAY
     Route: 055
  2. ADVAIR HFA [Suspect]
     Indication: ASTHMA
     Route: 055
  3. LANSOPRAZOLE [Concomitant]
  4. SPIRIVA [Concomitant]
  5. VENTOLIN [Concomitant]
  6. AMBIEN [Concomitant]
  7. ALLOPURINOL [Concomitant]
  8. ASPIRIN [Concomitant]
  9. FLUTICASONE [Concomitant]
  10. LOSARTAN [Concomitant]
  11. POTASSIUM [Concomitant]

REACTIONS (7)
  - Lung infection [Unknown]
  - Cough [Recovering/Resolving]
  - Therapeutic response decreased [Unknown]
  - Dyspnoea [Unknown]
  - Oxygen saturation decreased [Unknown]
  - Off label use [Unknown]
  - Drug administration error [Not Recovered/Not Resolved]
